FAERS Safety Report 6867254-3 (Version None)
Quarter: 2010Q2

REPORT INFORMATION
  Report Type: 
  Country: None (occurrence: None)
  Receive Date: 20100610
  Receipt Date: 20100215
  Transmission Date: 20101027
  Serious: No
  Sender: FDA-Public Use
  Company Number: 2010SP009142

PATIENT
  Age: 60 Year
  Sex: Male

DRUGS (6)
  1. SAPHRIS [Suspect]
     Indication: BIPOLAR II DISORDER
     Dosage: 10 MG; BID;
     Dates: start: 20100211
  2. NEURONTIN [Concomitant]
  3. LAMICTAL [Concomitant]
  4. WELLBUTRIN SR [Concomitant]
  5. VIAGRA [Concomitant]
  6. CYMBALTA [Concomitant]

REACTIONS (3)
  - ASTHENIA [None]
  - INSOMNIA [None]
  - LIBIDO DECREASED [None]
